FAERS Safety Report 19928433 (Version 1)
Quarter: 2021Q4

REPORT INFORMATION
  Report Type: Spontaneous
  Country: US (occurrence: US)
  Receive Date: 20211006
  Receipt Date: 20211006
  Transmission Date: 20220304
  Serious: Yes (Disabling)
  Sender: FDA-Public Use
  Company Number: None

PATIENT
  Age: 30 Year
  Sex: Female
  Weight: 58.5 kg

DRUGS (3)
  1. MONTELUKAST SODIUM [Suspect]
     Active Substance: MONTELUKAST SODIUM
     Indication: Asthma
     Dosage: ?          QUANTITY:1 TABLET(S);
     Route: 048
     Dates: start: 20210929, end: 20211004
  2. METOPROLOL [Concomitant]
     Active Substance: METOPROLOL
  3. ARNUITY ELLIPTA [Concomitant]
     Active Substance: FLUTICASONE FUROATE

REACTIONS (1)
  - Herpes zoster [None]

NARRATIVE: CASE EVENT DATE: 20211005
